FAERS Safety Report 25526761 (Version 1)
Quarter: 2025Q3

REPORT INFORMATION
  Report Type: Spontaneous
  Country: CA (occurrence: CA)
  Receive Date: 20250707
  Receipt Date: 20250707
  Transmission Date: 20251021
  Serious: Yes (Death)
  Sender: MERCK SHARP & DOHME LLC
  Company Number: CA-009507513-2304052

PATIENT
  Age: 78 Year
  Sex: Female

DRUGS (2)
  1. KEYTRUDA [Suspect]
     Active Substance: PEMBROLIZUMAB
     Route: 042
  2. PADCEV [Suspect]
     Active Substance: ENFORTUMAB VEDOTIN-EJFV
     Route: 042

REACTIONS (13)
  - Acute kidney injury [Fatal]
  - Abdominal pain upper [Fatal]
  - Asthenia [Fatal]
  - Disease progression [Fatal]
  - Dysphagia [Fatal]
  - Haematochezia [Fatal]
  - Hypotension [Fatal]
  - Hypoxia [Fatal]
  - Mobility decreased [Fatal]
  - Oropharyngeal pain [Fatal]
  - Pulmonary oedema [Fatal]
  - Rash pruritic [Fatal]
  - Vomiting [Fatal]
